FAERS Safety Report 20197559 (Version 1)
Quarter: 2021Q4

REPORT INFORMATION
  Report Type: Spontaneous
  Country: US (occurrence: US)
  Receive Date: 20211217
  Receipt Date: 20211217
  Transmission Date: 20220303
  Serious: No
  Sender: FDA-Public Use
  Company Number: US-ORG100016242-2021000549

PATIENT
  Age: 19 Year
  Sex: Male

DRUGS (2)
  1. EXPAREL [Suspect]
     Active Substance: BUPIVACAINE
     Dosage: ADMIXED WITH 15 ML OF LIDOCAINE
     Route: 050
     Dates: start: 20211014, end: 20211014
  2. LIDOCAINE [Suspect]
     Active Substance: LIDOCAINE
     Dosage: ADMIXED WITH 15 ML OF EXPAREL
     Route: 050
     Dates: start: 20211014, end: 20211014

REACTIONS (2)
  - No adverse event [Unknown]
  - Labelled drug-drug interaction medication error [Unknown]

NARRATIVE: CASE EVENT DATE: 20211014
